FAERS Safety Report 9701785 (Version 1)
Quarter: 2013Q4

REPORT INFORMATION
  Report Type: Report from Study
  Country: DE (occurrence: DE)
  Receive Date: 20131121
  Receipt Date: 20131121
  Transmission Date: 20140711
  Serious: Yes (Hospitalization)
  Sender: FDA-Public Use
  Company Number: PHHO2013DE015002

PATIENT
  Sex: 0

DRUGS (2)
  1. EXTAVIA [Suspect]
     Route: 058
     Dates: start: 20130911
  2. FTY [Suspect]
     Indication: RELAPSING-REMITTING MULTIPLE SCLEROSIS
     Dosage: 0.5 MG, UNK
     Route: 048
     Dates: start: 20130912, end: 20130923

REACTIONS (1)
  - Abdominal abscess [Recovering/Resolving]
